FAERS Safety Report 25917918 (Version 1)
Quarter: 2025Q4

REPORT INFORMATION
  Report Type: Spontaneous
  Country: JP (occurrence: JP)
  Receive Date: 20251014
  Receipt Date: 20251014
  Transmission Date: 20260118
  Serious: Yes (Death, Hospitalization, Other)
  Sender: BRISTOL-MYERS SQUIBB COMPANY
  Company Number: JP-BRISTOL-MYERS SQUIBB COMPANY-2025-139154

PATIENT
  Age: 48 Year
  Sex: Male
  Weight: 65 kg

DRUGS (9)
  1. VIDAZA [Suspect]
     Active Substance: AZACITIDINE
     Indication: Acute myeloid leukaemia
  2. CEFEPIME [Concomitant]
     Active Substance: CEFEPIME HYDROCHLORIDE
     Indication: Product used for unknown indication
     Dates: start: 202506, end: 202506
  3. MICAFUNGIN SODIUM [Concomitant]
     Active Substance: MICAFUNGIN SODIUM
     Indication: Product used for unknown indication
     Dates: start: 202507, end: 202508
  4. NOXAFIL [Concomitant]
     Active Substance: POSACONAZOLE
     Indication: Product used for unknown indication
     Dates: start: 202506, end: 202507
  5. SOLU-MEDROL [Concomitant]
     Active Substance: METHYLPREDNISOLONE SODIUM SUCCINATE
     Indication: Cytarabine syndrome
     Dates: start: 202506, end: 202507
  6. SOLU-MEDROL [Concomitant]
     Active Substance: METHYLPREDNISOLONE SODIUM SUCCINATE
     Dates: start: 202507, end: 202508
  7. TAZOBACTAM/PIPERACILLIN HYDRATE [Concomitant]
     Indication: Product used for unknown indication
     Dates: start: 202506, end: 202507
  8. TAZOBACTAM/PIPERACILLIN HYDRATE [Concomitant]
     Dates: start: 202507, end: 202508
  9. VENCLEXTA [Concomitant]
     Active Substance: VENETOCLAX
     Indication: Acute myeloid leukaemia

REACTIONS (3)
  - Cardio-respiratory arrest [Unknown]
  - Myelosuppression [Unknown]
  - Sepsis [Fatal]

NARRATIVE: CASE EVENT DATE: 20250101
